FAERS Safety Report 7296855-6 (Version None)
Quarter: 2011Q1

REPORT INFORMATION
  Report Type: 
  Country: None (occurrence: None)
  Receive Date: 20110216
  Receipt Date: 20110210
  Transmission Date: 20110831
  Serious: Yes (Other)
  Sender: FDA-Public Use
  Company Number: US-GENZYME-FABR-1001537

PATIENT

DRUGS (2)
  1. FABRAZYME [Suspect]
     Indication: FABRY'S DISEASE
     Dosage: 75 MG, Q2W
     Route: 042
     Dates: start: 20080101
  2. FABRAZYME [Suspect]
     Dosage: 75 MG, Q4W
     Route: 042
     Dates: start: 20090101

REACTIONS (1)
  - HYPERTROPHIC CARDIOMYOPATHY [None]
